FAERS Safety Report 9146299 (Version 1)
Quarter: 2013Q1

REPORT INFORMATION
  Report Type: Spontaneous
  Country: US (occurrence: None)
  Receive Date: 20130219
  Receipt Date: 20130219
  Transmission Date: 20140127
  Serious: Yes (Death)
  Sender: FDA-Public Use
  Company Number: ACO_33970_2013

PATIENT
  Age: 58 Year
  Sex: Female
  Weight: 52.2 kg

DRUGS (4)
  1. AMPYRA (DALFAMPRIDINE) TABLET, 10MG [Suspect]
     Indication: MOTOR DYSFUNCTION
  2. COPAXONE (GLATIRAMER ACETATE) [Concomitant]
  3. AMANTADINE (AMANTADINE HYDROCHLORIDE) [Concomitant]
  4. BONIVA (IBANDRONATE SODIUM) [Concomitant]

REACTIONS (1)
  - Respiratory arrest [None]
